FAERS Safety Report 17876979 (Version 2)
Quarter: 2020Q2

REPORT INFORMATION
  Report Type: Spontaneous
  Country: IN (occurrence: IT)
  Receive Date: 20200609
  Receipt Date: 20200622
  Transmission Date: 20200714
  Serious: Yes (Life-Threatening, Hospitalization, Disabling, Other)
  Sender: FDA-Public Use
  Company Number: IT-ELI_LILLY_AND_COMPANY-IT202006002610

PATIENT
  Age: 57 Year
  Sex: Female
  Weight: 60 kg

DRUGS (14)
  1. ADRIAMYCIN [Suspect]
     Active Substance: DOXORUBICIN HYDROCHLORIDE
     Indication: HODGKIN^S DISEASE
     Dosage: 25 MG/M2, CYCLICAL (ON DAY 1)
     Route: 065
     Dates: start: 201210, end: 201210
  2. DACARBAZINE. [Suspect]
     Active Substance: DACARBAZINE
     Indication: HODGKIN^S DISEASE
     Dosage: 375 MG/M2, CYCLICAL (ON DAYS 1 AND 15)
     Route: 065
     Dates: start: 20100601, end: 20101206
  3. BLEOMYCIN [Suspect]
     Active Substance: BLEOMYCIN SULFATE
     Indication: HODGKIN^S DISEASE
     Dosage: 10 IU/M2 ON DAY 8
     Route: 065
     Dates: start: 201210, end: 201210
  4. VINBLASTINE [Suspect]
     Active Substance: VINBLASTINE
     Indication: HODGKIN^S DISEASE
     Dosage: 6 MG/M2, CYCLICAL (DAYS 1 AND 15)
     Route: 065
     Dates: start: 20100601, end: 20101206
  5. BLEOMYCIN [Suspect]
     Active Substance: BLEOMYCIN SULFATE
     Indication: HODGKIN^S DISEASE
     Dosage: 10 IU/M2,  CYCLICAL (ON DAYS 1 AND 15)
     Route: 065
     Dates: start: 20100601, end: 20101206
  6. PREDNISONE. [Suspect]
     Active Substance: PREDNISONE
     Indication: HODGKIN^S DISEASE
     Dosage: 40 MG/M2, CYCLICAL (ON DAYS 1 AND 7)
     Dates: start: 201210, end: 201210
  7. GEMCITABINE HYDROCHLORIDE. [Suspect]
     Active Substance: GEMCITABINE HYDROCHLORIDE
     Indication: HODGKIN^S DISEASE
     Dosage: 800 MG/M2, CYCLICAL (ON DAYS 1 AND 4 )
     Route: 065
     Dates: start: 201109
  8. VINCRISTINE [Suspect]
     Active Substance: VINCRISTINE
     Indication: HODGKIN^S DISEASE
     Dosage: 1.4 MG/M2, CYCLICAL (ON DAY 8)
     Route: 065
     Dates: start: 201210, end: 201210
  9. ADRIAMYCIN [Suspect]
     Active Substance: DOXORUBICIN HYDROCHLORIDE
     Indication: HODGKIN^S DISEASE
     Dosage: 25 MG/M2, CYCLICAL (ON DAYS 1 AND 15 )
     Route: 065
     Dates: start: 20100601, end: 20101206
  10. VINORELBINE [Suspect]
     Active Substance: VINORELBINE TARTRATE
     Indication: HODGKIN^S DISEASE
     Dosage: 20 MG/M2, CYCLICAL (ON DAY 1)
     Dates: start: 201109
  11. PROCARBAZINE [Suspect]
     Active Substance: PROCARBAZINE
     Indication: HODGKIN^S DISEASE
     Dosage: 100 MG/M2, CYCLICAL (ON DAYS 1 AND 7)
     Route: 065
     Dates: start: 201210, end: 201210
  12. CYCLOPHOSPHAMIDE. [Suspect]
     Active Substance: CYCLOPHOSPHAMIDE
     Indication: HODGKIN^S DISEASE
     Dosage: 650 MG/M2, CYCLICAL (ON DAY 1)
     Route: 065
     Dates: start: 201210, end: 201210
  13. IFOSFAMIDE. [Suspect]
     Active Substance: IFOSFAMIDE
     Indication: HODGKIN^S DISEASE
     Dosage: 2000 MG/M2, CYCLICAL (ON DAYS 1, 2, 3 AND 4)
     Dates: start: 201109
  14. ETOPOSIDE. [Suspect]
     Active Substance: ETOPOSIDE
     Indication: HODGKIN^S DISEASE
     Dosage: 100 MG/M2, CYCLICAL (ON DAYS 1 AND 3)
     Route: 065
     Dates: start: 201210, end: 201210

REACTIONS (4)
  - Pancytopenia [Unknown]
  - Progressive multifocal leukoencephalopathy [Not Recovered/Not Resolved]
  - JC virus infection [Unknown]
  - Lymphopenia [Unknown]

NARRATIVE: CASE EVENT DATE: 201210
